FAERS Safety Report 7383941-5 (Version None)
Quarter: 2011Q1

REPORT INFORMATION
  Report Type: 
  Country: None (occurrence: None)
  Receive Date: 20110330
  Receipt Date: 20110324
  Transmission Date: 20110831
  Serious: Yes (Hospitalization)
  Sender: FDA-Public Use
  Company Number: NL-PFIZER INC-2011066425

PATIENT
  Age: 4 Year
  Sex: Female
  Weight: 17 kg

DRUGS (1)
  1. ZITHROMAX [Suspect]
     Indication: PYREXIA
     Dosage: 5 ML, 1X/DAY
     Dates: start: 20110301

REACTIONS (3)
  - FATIGUE [None]
  - EMOTIONAL DISORDER [None]
  - APATHY [None]
